FAERS Safety Report 8610926-0 (Version None)
Quarter: 2012Q3

REPORT INFORMATION
  Report Type: 
  Country: None (occurrence: None)
  Receive Date: 20120809
  Receipt Date: 20120727
  Transmission Date: 20120928
  Serious: Yes (Life-Threatening, Other)
  Sender: FDA-Public Use
  Company Number: DSA_56317_2012

PATIENT
  Sex: Male

DRUGS (20)
  1. CLINDAMYCIN [Concomitant]
  2. DOXYCYCLINE [Concomitant]
  3. BUPROPION HCL [Concomitant]
  4. SERTRALNE [Concomitant]
  5. HYDROCODONE W/APAP/01554201/ [Concomitant]
  6. CEFADROXIL [Concomitant]
  7. CHLORHEXIDINE GLUCONATE [Concomitant]
  8. CLARINEX /01202601/ [Concomitant]
  9. METHYLPREDNISOLONE [Concomitant]
  10. LORAZEPAM [Concomitant]
  11. ALPRAZOLAM [Concomitant]
  12. IBUPROFEN [Concomitant]
  13. LEXAPRO [Concomitant]
  14. ELIDEL [Suspect]
     Indication: PRODUCT USED FOR UNKNOWN INDICATION
     Dosage: DF TOPICAL
     Route: 061
     Dates: start: 20030401, end: 20061201
  15. BENZONATATE [Concomitant]
  16. PROCHLORPERAZINE [Concomitant]
  17. PENICILLIN VK [Concomitant]
  18. IBUPROFEN (ADVIL) [Concomitant]
  19. ZOLOFT [Concomitant]
  20. PROTOPIC [Suspect]
     Indication: PRODUCT USED FOR UNKNOWN INDICATION
     Dosage: DF

REACTIONS (14)
  - NON-HODGKIN'S LYMPHOMA [None]
  - PASTEURELLA INFECTION [None]
  - SEROSITIS [None]
  - RHINITIS ALLERGIC [None]
  - ESSENTIAL HYPERTENSION [None]
  - BONE NEOPLASM [None]
  - DYSPLASIA [None]
  - FIBROSIS [None]
  - HYPOAESTHESIA [None]
  - STRESS [None]
  - LACERATION [None]
  - DIZZINESS [None]
  - INJURY [None]
  - BALANCE DISORDER [None]
